FAERS Safety Report 8413853-7 (Version None)
Quarter: 2012Q2

REPORT INFORMATION
  Report Type: 
  Country: None (occurrence: None)
  Receive Date: 20120605
  Receipt Date: 20120510
  Transmission Date: 20120825
  Serious: Yes (Other)
  Sender: FDA-Public Use
  Company Number: GB-GLAXOSMITHKLINE-A0979940A

PATIENT
  Sex: Female

DRUGS (2)
  1. NICORETTE [Suspect]
     Indication: SMOKING CESSATION THERAPY
     Route: 055
  2. NICORETTE [Suspect]
     Indication: SMOKING CESSATION THERAPY
     Dosage: 25MG PER DAY

REACTIONS (6)
  - NAUSEA [None]
  - MALAISE [None]
  - OVERDOSE [None]
  - AGGRESSION [None]
  - DRUG ADMINISTRATION ERROR [None]
  - ANGER [None]
